FAERS Safety Report 23191814 (Version 1)
Quarter: 2023Q4

REPORT INFORMATION
  Report Type: Spontaneous
  Country: None (occurrence: FR)
  Receive Date: 20231116
  Receipt Date: 20231116
  Transmission Date: 20240109
  Serious: Yes (Hospitalization, Other)
  Sender: FDA-Public Use
  Company Number: FR-Fertin Pharma A/S-2148352

PATIENT
  Age: 53 Year
  Sex: Male

DRUGS (5)
  1. NICOTINE POLACRILEX [Suspect]
     Active Substance: NICOTINE
     Indication: Product used for unknown indication
     Route: 065
  2. ALCOHOL [Suspect]
     Active Substance: ALCOHOL
  3. BROMAZEPAM [Suspect]
     Active Substance: BROMAZEPAM
  4. CANNABIS SATIVA SUBSP. INDICA TOP [Suspect]
     Active Substance: CANNABIS SATIVA SUBSP. INDICA TOP
  5. SUBUTEX [Suspect]
     Active Substance: BUPRENORPHINE HYDROCHLORIDE
     Route: 048

REACTIONS (7)
  - Salivary hypersecretion [Unknown]
  - Coma [Recovered/Resolved]
  - Coma [Unknown]
  - Coma [Recovered/Resolved]
  - Depressed level of consciousness [Unknown]
  - Drug dependence [Recovered/Resolved]
  - Overdose [Recovered/Resolved]

NARRATIVE: CASE EVENT DATE: 20230101
